FAERS Safety Report 4596300-5 (Version None)
Quarter: 2005Q1

REPORT INFORMATION
  Report Type: 
  Country: None (occurrence: None)
  Receive Date: 20050302
  Receipt Date: 20050208
  Transmission Date: 20050727
  Serious: Yes (Death, Hospitalization)
  Sender: FDA-Public Use
  Company Number: US-MERCK-0502USA00801

PATIENT

DRUGS (4)
  1. ZOCOR [Suspect]
     Route: 048
  2. LOPID [Concomitant]
     Route: 065
  3. AMIODARONE [Concomitant]
     Route: 065
  4. LIPITOR [Suspect]
     Route: 065

REACTIONS (2)
  - DEATH [None]
  - RHABDOMYOLYSIS [None]
